FAERS Safety Report 5588962-0 (Version None)
Quarter: 2007Q4

REPORT INFORMATION
  Report Type: 
  Country: None (occurrence: None)
  Receive Date: 20071212
  Receipt Date: 20070420
  Transmission Date: 20080405
  Serious: Yes (Death)
  Sender: FDA-Public Use
  Company Number: USA-2007-0027132

PATIENT
  Age: 43 Year
  Sex: Female
  Weight: 110.7 kg

DRUGS (3)
  1. OXYCODONE HYDROCHLORIDE (SIMILAR TO NDA 20-553) (OXYCODONE HYDROCHLORI [Suspect]
     Indication: DRUG ABUSE
     Dosage: ORAL
     Route: 048
  2. METHADONE HCL [Suspect]
     Indication: DRUG ABUSE
     Dosage: ORAL
     Route: 048
  3. ALPRAZOLAM [Concomitant]

REACTIONS (1)
  - MULTIPLE DRUG OVERDOSE ACCIDENTAL [None]
